FAERS Safety Report 21606814 (Version 6)
Quarter: 2023Q1

REPORT INFORMATION
  Report Type: Report from Study
  Country: CH (occurrence: CH)
  Receive Date: 20221117
  Receipt Date: 20230111
  Transmission Date: 20230417
  Serious: Yes (Other)
  Sender: FDA-Public Use
  Company Number: CH-002147023-NVSC2022CH255463

PATIENT
  Age: 74 Year
  Sex: Male
  Weight: 83 kg

DRUGS (13)
  1. TISAGENLECLEUCEL [Suspect]
     Active Substance: TISAGENLECLEUCEL
     Indication: Plasma cell myeloma refractory
     Dosage: 2.0 X 10E8 CELLS
     Route: 042
     Dates: start: 20200317
  2. RITUXIMAB [Suspect]
     Active Substance: RITUXIMAB
     Indication: Plasma cell myeloma refractory
     Dosage: 780 MG, ONCE
     Route: 042
     Dates: start: 20200129
  3. CARBOPLATIN [Suspect]
     Active Substance: CARBOPLATIN
     Indication: Plasma cell myeloma refractory
     Dosage: 630 MG, ONCE
     Route: 042
     Dates: start: 20200130
  4. MESNA [Suspect]
     Active Substance: MESNA
     Indication: Plasma cell myeloma refractory
     Dosage: 8360 MG, CONTINUOUS INFUSION 24H
     Route: 065
     Dates: start: 20200130
  5. ETOPOSIDE [Suspect]
     Active Substance: ETOPOSIDE
     Indication: Plasma cell myeloma refractory
     Dosage: 630 MG, EVERYDAY
     Route: 042
     Dates: start: 20200129
  6. IFOSFAMIDE [Suspect]
     Active Substance: IFOSFAMIDE
     Indication: Plasma cell myeloma refractory
     Dosage: 10450 MG, CONTINUOUS INFUSION 24H
     Route: 065
     Dates: start: 20200130
  7. CYCLOPHOSPHAMIDE [Suspect]
     Active Substance: CYCLOPHOSPHAMIDE
     Indication: Chemotherapy
     Dosage: 1500 MG, EVERYDAY
     Route: 065
     Dates: start: 20200309, end: 20200311
  8. VALTREX [Concomitant]
     Active Substance: VALACYCLOVIR HYDROCHLORIDE
     Indication: Antiviral prophylaxis
     Dosage: UNK
     Route: 065
     Dates: start: 20200131
  9. BACTRIM [Concomitant]
     Active Substance: SULFAMETHOXAZOLE\TRIMETHOPRIM
     Indication: Antibiotic prophylaxis
     Dosage: UNK
     Route: 065
     Dates: start: 20200204
  10. CRESEMBA [Concomitant]
     Active Substance: ISAVUCONAZONIUM SULFATE
     Indication: Antifungal prophylaxis
     Dosage: UNK
     Route: 065
     Dates: start: 20200327
  11. CRESEMBA [Concomitant]
     Active Substance: ISAVUCONAZONIUM SULFATE
     Indication: Pneumonia fungal
  12. DAFALGAN [Concomitant]
     Active Substance: ACETAMINOPHEN
     Indication: Neuralgia
     Dosage: UNK
     Route: 065
     Dates: start: 20200327
  13. FLUDARABINE [Concomitant]
     Active Substance: FLUDARABINE PHOSPHATE
     Indication: Chemotherapy
     Dosage: 150 MG, EVERYDAY
     Route: 065
     Dates: start: 20200309, end: 20200311

REACTIONS (3)
  - Myelodysplastic syndrome [Not Recovered/Not Resolved]
  - Second primary malignancy [Not Recovered/Not Resolved]
  - Dysplasia [Not Recovered/Not Resolved]

NARRATIVE: CASE EVENT DATE: 20220121
